APPROVED DRUG PRODUCT: NEBIVOLOL HYDROCHLORIDE
Active Ingredient: NEBIVOLOL HYDROCHLORIDE
Strength: EQ 2.5MG BASE
Dosage Form/Route: TABLET;ORAL
Application: A203683 | Product #001
Applicant: WATSON LABORATORIES INC
Approved: Nov 27, 2015 | RLD: No | RS: No | Type: DISCN